FAERS Safety Report 10382939 (Version 1)
Quarter: 2014Q3

REPORT INFORMATION
  Report Type: Spontaneous
  Country: US (occurrence: US)
  Receive Date: 20140813
  Receipt Date: 20140813
  Transmission Date: 20150326
  Serious: No
  Sender: FDA-Public Use
  Company Number: US-SA-2014SA054341

PATIENT
  Age: 48 Year
  Sex: Male
  Weight: 88.45 kg

DRUGS (13)
  1. FABRAZYME [Suspect]
     Active Substance: AGALSIDASE BETA
     Indication: FABRY^S DISEASE
     Dosage: FABRAZYME 35 MG AND 5 MG
     Route: 042
     Dates: start: 20121106
  2. DIPHENHYDRAMINE [Concomitant]
     Active Substance: DIPHENHYDRAMINE
  3. FLONASE [Concomitant]
     Active Substance: FLUTICASONE PROPIONATE
  4. MULTIVITAMINS [Concomitant]
     Active Substance: VITAMINS
  5. LIDOCAINE. [Concomitant]
     Active Substance: LIDOCAINE
  6. NABUMETONE. [Concomitant]
     Active Substance: NABUMETONE
  7. NORMAL SALINE [Concomitant]
     Active Substance: SODIUM CHLORIDE
  8. ADVAIR HFA [Concomitant]
     Active Substance: FLUTICASONE PROPIONATE\SALMETEROL XINAFOATE
  9. FLUTICASONE [Concomitant]
     Active Substance: FLUTICASONE\FLUTICASONE PROPIONATE
  10. FABRAZYME [Suspect]
     Active Substance: AGALSIDASE BETA
     Indication: FABRY^S DISEASE
     Dosage: FABRAZYME 35 MG AND 5 MG
     Route: 042
     Dates: start: 20121106
  11. EPIPEN [Concomitant]
     Active Substance: EPINEPHRINE
  12. SINGULAIR [Concomitant]
     Active Substance: MONTELUKAST SODIUM
  13. COUMADIN [Concomitant]
     Active Substance: WARFARIN SODIUM

REACTIONS (1)
  - Sinusitis [Not Recovered/Not Resolved]
